FAERS Safety Report 9754322 (Version 2)
Quarter: 2015Q1

REPORT INFORMATION
  Report Type: Report from Study
  Country: JP (occurrence: JP)
  Receive Date: 20131213
  Receipt Date: 20150110
  Transmission Date: 20150721
  Serious: Yes (Hospitalization)
  Sender: FDA-Public Use
  Company Number: JP-BRISTOL-MYERS SQUIBB COMPANY-19876416

PATIENT
  Age: 77 Year
  Weight: 54 kg

DRUGS (26)
  1. GRANISETRON HCL [Concomitant]
     Indication: PREMEDICATION
     Dosage: UNK
     Dates: start: 20130910, end: 20131105
  2. RINDERON VG [Concomitant]
     Active Substance: BETAMETHASONE VALERATE\GENTAMICIN SULFATE
     Dosage: UNK
     Dates: start: 20130917, end: 20131030
  3. TAKEPRON [Concomitant]
     Active Substance: LANSOPRAZOLE
     Indication: HICCUPS
     Dosage: UNK
     Dates: start: 20131008
  4. LEFTOSE [Concomitant]
     Indication: COUGH
     Dosage: -08NV13(301DAYS)
     Dates: start: 20131008, end: 20131108
  5. LYRICA [Concomitant]
     Active Substance: PREGABALIN
     Indication: NEUROPATHY PERIPHERAL
     Dosage: UNK
     Dates: start: 20131105
  6. ZANTAC [Concomitant]
     Active Substance: RANITIDINE HYDROCHLORIDE
     Indication: PREMEDICATION
     Dosage: 10SEP13-05NV13
     Dates: start: 20130910
  7. BENZETHONIUM CHLORIDE [Concomitant]
     Active Substance: BENZETHONIUM CHLORIDE
     Indication: ORAL DISORDER
     Dosage: BENZETHONIUM CHLORIDE
     Dates: start: 20130910
  8. MOBIC [Concomitant]
     Active Substance: MELOXICAM
     Indication: HEADACHE
  9. RINDERON V [Concomitant]
     Active Substance: BETAMETHASONE VALERATE
     Indication: ASTHENIA
     Dosage: UNK
     Dates: start: 20131120, end: 20131122
  10. DECADRON [Concomitant]
     Active Substance: DEXAMETHASONE
     Indication: PROPHYLAXIS OF NAUSEA AND VOMITING
     Dosage: 10SEP13-05NV13  11SEP13-07NV13
     Dates: start: 20130910
  11. SODIUM HYALURONATE [Concomitant]
     Active Substance: HYALURONATE SODIUM
     Indication: CATARACT
     Dosage: SODIUM HYALURONATE 0.3% SOL
     Route: 047
  12. MOBIC [Concomitant]
     Active Substance: MELOXICAM
     Indication: ARTHRALGIA
     Dosage: UNK
     Dates: start: 20131016
  13. ASCORBIC ACID. [Concomitant]
     Active Substance: ASCORBIC ACID
     Dosage: PLEVITA S
     Dates: start: 20131120, end: 20131120
  14. BEVACIZUMAB [Suspect]
     Active Substance: BEVACIZUMAB
     Indication: BREAST CANCER METASTATIC
     Dosage: RECENT DOSE:5-NOV-13
     Route: 042
     Dates: start: 20130910
  15. POLARAMINE [Concomitant]
     Active Substance: DEXCHLORPHENIRAMINE MALEATE
     Indication: PREMEDICATION
     Dosage: 10SEP13-05NV13
     Dates: start: 20130910
  16. SANCOBA [Concomitant]
     Active Substance: CYANOCOBALAMIN
     Indication: CATARACT
     Dosage: SANCOBA (0.02% SOL)
     Route: 047
  17. PLACEBO [Suspect]
     Active Substance: UNSPECIFIED INGREDIENT
     Indication: BREAST CANCER METASTATIC
     Route: 065
  18. KARY UNI [Concomitant]
     Active Substance: PIRENOXINE
     Indication: CATARACT
     Dosage: KARY UNI((0.005%)
     Route: 047
  19. SENNOSIDE [Concomitant]
     Active Substance: SENNOSIDES
     Indication: CONSTIPATION
     Dosage: 12SEP13-31OCT13
     Dates: start: 20131008, end: 20131031
  20. SOLU-CORTEF [Concomitant]
     Active Substance: HYDROCORTISONE SODIUM SUCCINATE
     Dosage: UNK
     Dates: start: 20131119, end: 20131119
  21. FESIN [Concomitant]
     Active Substance: IRON SUCROSE
     Indication: ANAEMIA
  22. THIAMINE [Concomitant]
     Active Substance: THIAMINE
     Indication: ELECTROLYTE SUBSTITUTION THERAPY
  23. GLYCYRON [Concomitant]
     Active Substance: AMMONIUM GLYCYRRHIZATE\GLYCINE\METHIONINE
     Indication: LIVER DISORDER
     Dosage: 18SEP13-05NV13
     Dates: start: 20131008, end: 20131008
  24. VEEN-D [Concomitant]
     Active Substance: DEXTROSE
     Indication: DEHYDRATION
     Dosage: UNK
     Dates: start: 20131112, end: 20131112
  25. PACLITAXEL. [Suspect]
     Active Substance: PACLITAXEL
     Indication: BREAST CANCER METASTATIC
     Dosage: UNK, QWK
     Route: 065
     Dates: start: 20130910
  26. PRIMPERAN [Concomitant]
     Active Substance: METOCLOPRAMIDE HYDROCHLORIDE
     Indication: NASOPHARYNGITIS
     Dosage: UNK
     Dates: start: 20131112, end: 20131112

REACTIONS (1)
  - Asthenia [Recovered/Resolved]

NARRATIVE: CASE EVENT DATE: 20131113
